FAERS Safety Report 8382555 (Version 3)
Quarter: 2012Q4

REPORT INFORMATION
  Report Type: 
  Country: US (occurrence: US)
  Receive Date: 20120201
  Receipt Date: 20121107
  Transmission Date: 20130627
  Serious: Yes (Other)
  Sender: FDA-Public Use
  Company Number: US-ROCHE-1035046

PATIENT
  Age: 18 Year
  Sex: Male
  Weight: 71.28 kg

DRUGS (1)
  1. ACCUTANE [Suspect]
     Indication: ACNE
     Route: 048
     Dates: start: 19970908, end: 199712

REACTIONS (7)
  - Inflammatory bowel disease [Unknown]
  - Anxiety [Unknown]
  - Crohn^s disease [Unknown]
  - Dry skin [Unknown]
  - Lip dry [Unknown]
  - Chapped lips [Unknown]
  - Cheilosis [Unknown]
